FAERS Safety Report 8419342-8 (Version None)
Quarter: 2012Q2

REPORT INFORMATION
  Report Type: 
  Country: None (occurrence: None)
  Receive Date: 20120607
  Receipt Date: 20120507
  Transmission Date: 20120825
  Serious: No
  Sender: FDA-Public Use
  Company Number: US-ASTRAZENECA-2012SE29601

PATIENT
  Age: 33 Year
  Sex: Female

DRUGS (4)
  1. OMEPRAZOLE [Suspect]
     Route: 048
  2. PREVACID [Concomitant]
  3. NEXIUM [Suspect]
     Route: 048
  4. PROTONIX [Concomitant]

REACTIONS (5)
  - PAIN [None]
  - GASTRIC DISORDER [None]
  - ULCER [None]
  - DRUG INEFFECTIVE [None]
  - INTENTIONAL DRUG MISUSE [None]
